FAERS Safety Report 6860377-4 (Version None)
Quarter: 2010Q3

REPORT INFORMATION
  Report Type: 
  Country: None (occurrence: None)
  Receive Date: 20100719
  Receipt Date: 20100719
  Transmission Date: 20110219
  Serious: Yes (Life-Threatening)
  Sender: FDA-Public Use
  Company Number: None

PATIENT
  Age: 14 Year
  Sex: Male
  Weight: 70 kg

DRUGS (2)
  1. HYDROCORTISONE [Suspect]
     Dosage: 10 MG Q 8 HRS PO
     Route: 048
     Dates: start: 20070101, end: 20070102
  2. HYDROCORTISONE [Suspect]
     Dosage: 10 MG Q 8 HRS PO
     Route: 048
     Dates: start: 20070102, end: 20070103

REACTIONS (2)
  - ADRENAL INSUFFICIENCY [None]
  - PRODUCT SUBSTITUTION ISSUE [None]
